FAERS Safety Report 4942041-1 (Version None)
Quarter: 2006Q1

REPORT INFORMATION
  Report Type: 
  Country: None (occurrence: None)
  Receive Date: 20060313
  Receipt Date: 20050428
  Transmission Date: 20060701
  Serious: No
  Sender: FDA-Public Use
  Company Number: US-GLAXOSMITHKLINE-A0556126A

PATIENT
  Sex: Female
  Weight: 81 kg

DRUGS (4)
  1. NICORETTE [Suspect]
  2. EQUATE NICOTINE GUM 2MG [Suspect]
  3. LIPITOR [Concomitant]
  4. ZOCOR [Concomitant]
     Route: 048

REACTIONS (3)
  - DRUG ABUSER [None]
  - DRUG WITHDRAWAL SYNDROME [None]
  - IRRITABILITY [None]
